FAERS Safety Report 15478321 (Version 4)
Quarter: 2018Q4

REPORT INFORMATION
  Report Type: Spontaneous
  Country: US (occurrence: US)
  Receive Date: 20181009
  Receipt Date: 20181213
  Transmission Date: 20190205
  Serious: No
  Sender: FDA-Public Use
  Company Number: US-SA-2018SA272851

PATIENT
  Age: 64 Year
  Sex: Female

DRUGS (12)
  1. PRALUENT [Suspect]
     Active Substance: ALIROCUMAB
     Indication: TYPE V HYPERLIPIDAEMIA
     Dosage: 150 MG, QOW
     Route: 058
     Dates: start: 20161223
  2. FARXIGA [Concomitant]
     Active Substance: DAPAGLIFLOZIN PROPANEDIOL
  3. ZETIA [Concomitant]
     Active Substance: EZETIMIBE
  4. ASPIRIN [ACETYLSALICYLIC ACID] [Concomitant]
     Active Substance: ASPIRIN
  5. GLIMEPIRIDE. [Concomitant]
     Active Substance: GLIMEPIRIDE
  6. IMIPRAMINE [Concomitant]
     Active Substance: IMIPRAMINE
  7. SOOLANTRA [Concomitant]
     Active Substance: IVERMECTIN
  8. LISINOPRIL. [Concomitant]
     Active Substance: LISINOPRIL
  9. DESONIDE. [Concomitant]
     Active Substance: DESONIDE
  10. METFORMIN [Concomitant]
     Active Substance: METFORMIN HYDROCHLORIDE
  11. BLACK COHOSH EXTRACT [Concomitant]
  12. LIVALO [Concomitant]
     Active Substance: PITAVASTATIN CALCIUM

REACTIONS (2)
  - Blood blister [Unknown]
  - Skin lesion [Unknown]
